FAERS Safety Report 5557390-6 (Version None)
Quarter: 2007Q4

REPORT INFORMATION
  Report Type: 
  Country: None (occurrence: None)
  Receive Date: 20071211
  Receipt Date: 20071108
  Transmission Date: 20080405
  Serious: Yes (Hospitalization)
  Sender: FDA-Public Use
  Company Number: 2007S1011612

PATIENT
  Sex: Female

DRUGS (6)
  1. BACLOFEN [Suspect]
     Indication: DRUG USE FOR UNKNOWN INDICATION
     Dosage: 20 MG; 5 MG; 1 MG; 0.5 MG; 5 MG
     Dates: start: 20070504, end: 20070507
  2. BACLOFEN [Suspect]
     Indication: DRUG USE FOR UNKNOWN INDICATION
     Dosage: 20 MG; 5 MG; 1 MG; 0.5 MG; 5 MG
     Dates: start: 20070507, end: 20070517
  3. BACLOFEN [Suspect]
     Indication: DRUG USE FOR UNKNOWN INDICATION
     Dosage: 20 MG; 5 MG; 1 MG; 0.5 MG; 5 MG
     Dates: start: 20070527
  4. BACLOFEN [Suspect]
     Indication: DRUG USE FOR UNKNOWN INDICATION
     Dosage: 20 MG; 5 MG; 1 MG; 0.5 MG; 5 MG
     Dates: start: 20070602
  5. CLONAZEPAM [Suspect]
  6. CYCLIZINE (CYCLIZINE) [Suspect]

REACTIONS (22)
  - ADVERSE EVENT [None]
  - ANOREXIA [None]
  - ANXIETY [None]
  - DEPRESSION [None]
  - DIARRHOEA [None]
  - DIPLOPIA [None]
  - DRUG WITHDRAWAL SYNDROME [None]
  - DRY MOUTH [None]
  - DYSGEUSIA [None]
  - EAR INFECTION [None]
  - HALLUCINATIONS, MIXED [None]
  - HYPERHIDROSIS [None]
  - MENSTRUAL DISORDER [None]
  - MOOD ALTERED [None]
  - MUSCLE DISORDER [None]
  - NIGHTMARE [None]
  - PALPITATIONS [None]
  - PARAESTHESIA [None]
  - TREMOR [None]
  - VAGINAL DISCHARGE [None]
  - VERTIGO [None]
  - WEIGHT DECREASED [None]
